FAERS Safety Report 9617655 (Version 2)
Quarter: 2013Q4

REPORT INFORMATION
  Report Type: Spontaneous
  Country: DE (occurrence: DE)
  Receive Date: 20131011
  Receipt Date: 20131106
  Transmission Date: 20140711
  Serious: Yes (Hospitalization)
  Sender: FDA-Public Use
  Company Number: DE-ELI_LILLY_AND_COMPANY-DE201309010132

PATIENT
  Age: 44 Year
  Sex: Female

DRUGS (9)
  1. CYMBALTA [Suspect]
     Indication: DEPRESSION
     Dosage: 60 MG, UNKNOWN
     Route: 048
     Dates: start: 201308, end: 201308
  2. PANTOPRAZOL [Concomitant]
     Dosage: 20 MG, EACH MORNING
     Route: 065
  3. OPIPRAMOL [Concomitant]
     Dosage: 100 MG, BID
     Route: 065
  4. AMISULPRID [Concomitant]
     Dosage: UNK, EACH EVENING
     Route: 065
  5. MAGNEROT                           /00950201/ [Concomitant]
     Dosage: UNK, BID
     Route: 065
  6. PERAZIN                            /00162503/ [Concomitant]
     Dosage: 25 MG, QD
     Route: 065
  7. FOLSAN [Concomitant]
     Dosage: 5 MG, QD
     Route: 065
  8. KORODIN [Concomitant]
     Dosage: UNK, OTHER: EIGHT DROPS
     Route: 065
  9. VENLAFAXIN [Concomitant]
     Dosage: UNK, UNKNOWN
     Route: 065

REACTIONS (4)
  - Mental disorder [Unknown]
  - Oedema peripheral [Not Recovered/Not Resolved]
  - Erythema [Unknown]
  - Haematoma [Not Recovered/Not Resolved]
